FAERS Safety Report 10331688 (Version 1)
Quarter: 2014Q3

REPORT INFORMATION
  Report Type: Report from Study
  Country: GB (occurrence: GB)
  Receive Date: 20140722
  Receipt Date: 20140722
  Transmission Date: 20150326
  Serious: Yes (Death)
  Sender: FDA-Public Use
  Company Number: GB-ASTELLAS-2014US008626

PATIENT
  Age: 64 Year
  Sex: Male

DRUGS (3)
  1. LOPERAMIDE [Concomitant]
     Active Substance: LOPERAMIDE
     Indication: BRONCHIAL CARCINOMA
     Dosage: UNK, UNKNOWN FREQ.
     Route: 048
     Dates: end: 20120615
  2. ERLOTINIB [Suspect]
     Active Substance: ERLOTINIB
     Indication: BRONCHIAL CARCINOMA
     Route: 048
     Dates: end: 20120615
  3. DOMPERIDONE [Concomitant]
     Active Substance: DOMPERIDONE
     Indication: BRONCHIAL CARCINOMA
     Dosage: UNK, UNKNOWN FREQ.
     Route: 048
     Dates: end: 20120615

REACTIONS (1)
  - Death [Fatal]
